FAERS Safety Report 9242211 (Version 1)
Quarter: 2013Q2

REPORT INFORMATION
  Report Type: Spontaneous
  Country: TW (occurrence: TW)
  Receive Date: 20130419
  Receipt Date: 20130419
  Transmission Date: 20140414
  Serious: Yes (Other)
  Sender: FDA-Public Use
  Company Number: PHHY2012TW087044

PATIENT
  Age: 58 Year
  Sex: Female

DRUGS (3)
  1. DEXAMETHASONE [Suspect]
  2. VINCRISTINE [Concomitant]
  3. DOXORUBICIN [Concomitant]

REACTIONS (3)
  - Tumour lysis syndrome [Unknown]
  - Oliguria [Unknown]
  - Decreased appetite [Unknown]
